FAERS Safety Report 5522188-1 (Version None)
Quarter: 2007Q4

REPORT INFORMATION
  Report Type: 
  Country: None (occurrence: None)
  Receive Date: 20071120
  Receipt Date: 20071113
  Transmission Date: 20080405
  Serious: Yes (Other)
  Sender: FDA-Public Use
  Company Number: A0695224A

PATIENT
  Age: 17 Year
  Sex: Female

DRUGS (1)
  1. LAMICTAL [Suspect]
     Indication: DRUG USE FOR UNKNOWN INDICATION
     Route: 048

REACTIONS (3)
  - ELECTROCARDIOGRAM ABNORMAL [None]
  - OVERDOSE [None]
  - WOLFF-PARKINSON-WHITE SYNDROME [None]
